FAERS Safety Report 9115423 (Version 1)
Quarter: 2013Q1

REPORT INFORMATION
  Report Type: Spontaneous
  Country: US (occurrence: None)
  Receive Date: 20130221
  Receipt Date: 20130221
  Transmission Date: 20140127
  Serious: No
  Sender: FDA-Public Use
  Company Number: None

PATIENT
  Sex: 0

DRUGS (1)
  1. ZETIA [Suspect]

REACTIONS (10)
  - Diarrhoea [None]
  - Musculoskeletal pain [None]
  - Hypertonia [None]
  - Myalgia [None]
  - Flatulence [None]
  - Fatigue [None]
  - Thyroid disorder [None]
  - Arthralgia [None]
  - Neck pain [None]
  - Musculoskeletal discomfort [None]
